FAERS Safety Report 16702091 (Version 3)
Quarter: 2019Q4

REPORT INFORMATION
  Report Type: Spontaneous
  Country: US (occurrence: US)
  Receive Date: 20190814
  Receipt Date: 20191023
  Transmission Date: 20200122
  Serious: No
  Sender: FDA-Public Use
  Company Number: US-PFIZER INC-2019342313

PATIENT
  Age: 51 Year
  Sex: Male
  Weight: 90.26 kg

DRUGS (3)
  1. RAPAMUNE [Suspect]
     Active Substance: SIROLIMUS
     Indication: BONE MARROW TRANSPLANT
  2. RAPAMUNE [Suspect]
     Active Substance: SIROLIMUS
     Indication: GRAFT VERSUS HOST DISEASE
     Dosage: 4 MG, DAILY [FOUR 1 MG TABLETS]
     Route: 048
     Dates: start: 20190717
  3. RAPAMUNE [Suspect]
     Active Substance: SIROLIMUS
     Indication: IMMUNOSUPPRESSANT DRUG THERAPY

REACTIONS (6)
  - Blood glucose increased [Unknown]
  - Off label use [Unknown]
  - Blood lactate dehydrogenase increased [Unknown]
  - Product use in unapproved indication [Unknown]
  - Medication error [Unknown]
  - Blood magnesium decreased [Unknown]
